FAERS Safety Report 6047140-1 (Version None)
Quarter: 2009Q1

REPORT INFORMATION
  Report Type: 
  Country: None (occurrence: None)
  Receive Date: 20090122
  Receipt Date: 20090119
  Transmission Date: 20090719
  Serious: Yes (Death)
  Sender: FDA-Public Use
  Company Number: PHEH2008US11105

PATIENT
  Sex: Male

DRUGS (2)
  1. EXJADE [Suspect]
     Indication: IRON OVERLOAD
     Dosage: 500 MG 2 QD
     Route: 048
     Dates: start: 20070608, end: 20081020
  2. HUMULIN [Concomitant]
     Route: 058

REACTIONS (3)
  - CALCULUS BLADDER [None]
  - URINARY TRACT INFECTION [None]
  - UROSEPSIS [None]
